FAERS Safety Report 8580348-X (Version None)
Quarter: 2012Q3

REPORT INFORMATION
  Report Type: 
  Country: None (occurrence: None)
  Receive Date: 20120808
  Receipt Date: 20120730
  Transmission Date: 20120928
  Serious: Yes (Hospitalization, Other)
  Sender: FDA-Public Use
  Company Number: AR-ALLERGAN-1210310US

PATIENT
  Age: 54 Year
  Sex: Female

DRUGS (2)
  1. BOTULINUM TOXIN TYPE A [Suspect]
     Indication: SKIN WRINKLING
     Dosage: 32 UNITS, SINGLE
     Route: 030
     Dates: start: 20120618, end: 20120618
  2. BOTULINUM TOXIN TYPE A [Suspect]
     Dosage: 50 UNITS, SINGLE

REACTIONS (15)
  - GUILLAIN-BARRE SYNDROME [None]
  - VIITH NERVE PARALYSIS [None]
  - DYSPNOEA [None]
  - TREMOR [None]
  - LETHARGY [None]
  - HYPERSENSITIVITY [None]
  - PALPITATIONS [None]
  - HEADACHE [None]
  - AGITATION [None]
  - NERVOUS SYSTEM DISORDER [None]
  - DIPLEGIA [None]
  - DRUG INEFFECTIVE [None]
  - CONVULSION [None]
  - PSYCHOSOMATIC DISEASE [None]
  - HYPERHIDROSIS [None]
